FAERS Safety Report 18278052 (Version 1)
Quarter: 2020Q3

REPORT INFORMATION
  Report Type: Spontaneous
  Country: GB (occurrence: GB)
  Receive Date: 20200917
  Receipt Date: 20200917
  Transmission Date: 20201103
  Serious: Yes (Other)
  Sender: FDA-Public Use
  Company Number: GB-TEVA-2020-GB-1827636

PATIENT
  Age: 15 Year
  Sex: Female
  Weight: 61 kg

DRUGS (7)
  1. LORATADINE. [Concomitant]
     Active Substance: LORATADINE
  2. MAGNESIUM [Concomitant]
     Active Substance: MAGNESIUM
  3. FLUOXETINE [Suspect]
     Active Substance: FLUOXETINE HYDROCHLORIDE
     Indication: ANXIETY
     Dosage: 20 MG
     Route: 048
     Dates: start: 20200610, end: 20200810
  4. ZINC. [Concomitant]
     Active Substance: ZINC
  5. PARACETAMOL [Concomitant]
     Active Substance: ACETAMINOPHEN
  6. GAVISCON DOUBLE ACTION [Concomitant]
  7. LANSOPRAZOLE. [Concomitant]
     Active Substance: LANSOPRAZOLE

REACTIONS (14)
  - Fatigue [Not Recovered/Not Resolved]
  - Head titubation [Not Recovered/Not Resolved]
  - Intentional self-injury [Recovering/Resolving]
  - Constipation [Recovering/Resolving]
  - Depressed mood [Not Recovered/Not Resolved]
  - Insomnia [Not Recovered/Not Resolved]
  - Anxiety [Not Recovered/Not Resolved]
  - Dry mouth [Recovering/Resolving]
  - Abnormal dreams [Recovering/Resolving]
  - Dizziness postural [Not Recovered/Not Resolved]
  - Coordination abnormal [Not Recovered/Not Resolved]
  - Dissociation [Recovered/Resolved]
  - Vaginal haemorrhage [Recovered/Resolved]
  - Suicidal ideation [Recovering/Resolving]

NARRATIVE: CASE EVENT DATE: 20200610
